FAERS Safety Report 5105030-2 (Version None)
Quarter: 2006Q3

REPORT INFORMATION
  Report Type: 
  Country: None (occurrence: None)
  Receive Date: 20060911
  Receipt Date: 20060807
  Transmission Date: 20061208
  Serious: Yes (Hospitalization)
  Sender: FDA-Public Use
  Company Number: 2006BI007645

PATIENT
  Age: 51 Year
  Sex: Female

DRUGS (2)
  1. AVONEX [Suspect]
     Indication: MULTIPLE SCLEROSIS
     Dosage: 30 UG; QW; IM
     Route: 030
  2. AVONEX [Suspect]
     Indication: MULTIPLE SCLEROSIS
     Dosage: 30 UG; QW; IM
     Route: 030
     Dates: start: 20060423

REACTIONS (7)
  - ASTHENIA [None]
  - CONDITION AGGRAVATED [None]
  - CRYING [None]
  - DEPRESSION [None]
  - LOSS OF CONSCIOUSNESS [None]
  - MULTIPLE SCLEROSIS [None]
  - WEIGHT DECREASED [None]
